FAERS Safety Report 5563248-9 (Version None)
Quarter: 2007Q4

REPORT INFORMATION
  Report Type: 
  Country: None (occurrence: None)
  Receive Date: 20071214
  Receipt Date: 20071214
  Transmission Date: 20080405
  Serious: No
  Sender: FDA-Public Use
  Company Number: None

PATIENT
  Sex: Female
  Weight: 70.3075 kg

DRUGS (1)
  1. ETHEDENT  RM   SPEARMINT [Suspect]
     Indication: DENTAL DISORDER PROPHYLAXIS
     Dosage: 1.1 % SODIUM FLUORIDE 2 TIMES PER DAY INTRAORAL
     Route: 048
     Dates: start: 20071116, end: 20071120

REACTIONS (2)
  - GINGIVAL PAIN [None]
  - GINGIVAL ULCERATION [None]
